FAERS Safety Report 6821800-4 (Version None)
Quarter: 2010Q3

REPORT INFORMATION
  Report Type: 
  Country: None (occurrence: None)
  Receive Date: 20100707
  Receipt Date: 20100707
  Transmission Date: 20110219
  Serious: Yes (Other)
  Sender: FDA-Public Use
  Company Number: None

PATIENT
  Sex: Female

DRUGS (1)
  1. PRAVASTATIN SODIUM [Suspect]
     Indication: HYPERCHOLESTEROLAEMIA
     Dosage: 40 MG QD PO
     Route: 048
     Dates: start: 20030201, end: 20100201

REACTIONS (5)
  - ABASIA [None]
  - HEPATIC FAILURE [None]
  - RENAL FAILURE [None]
  - RHABDOMYOLYSIS [None]
  - SWELLING [None]
